FAERS Safety Report 6197375-2 (Version None)
Quarter: 2009Q2

REPORT INFORMATION
  Report Type: 
  Country: None (occurrence: None)
  Receive Date: 20090521
  Receipt Date: 20090507
  Transmission Date: 20091009
  Serious: Yes (Other)
  Sender: FDA-Public Use
  Company Number: JP-JNJCH-2009013632

PATIENT
  Age: 12 Year
  Sex: Male

DRUGS (2)
  1. CETIRIZINE HYDROCHLORIDE [Suspect]
     Indication: RHINITIS SEASONAL
     Dosage: TEXT:5 MG
     Route: 048
     Dates: start: 20090301, end: 20090331
  2. PRANLUKAST [Concomitant]
     Indication: RHINITIS SEASONAL
     Dosage: TEXT:UNSPECIFIED
     Route: 065
     Dates: start: 20090311, end: 20090331

REACTIONS (2)
  - HYPERTHERMIA [None]
  - WHITE BLOOD CELL COUNT DECREASED [None]
